FAERS Safety Report 11095884 (Version 3)
Quarter: 2015Q3

REPORT INFORMATION
  Report Type: Other
  Country: IT (occurrence: IT)
  Receive Date: 20150507
  Receipt Date: 20150907
  Transmission Date: 20151125
  Serious: Yes (Hospitalization)
  Sender: FDA-Public Use
  Company Number: IT-SUN PHARMACEUTICAL INDUSTRIES LTD-2015SUN01108

PATIENT

DRUGS (2)
  1. EPIRUBICIN [Concomitant]
     Active Substance: EPIRUBICIN
     Indication: COLON NEOPLASM
     Dosage: 72.5 MG, UNK
  2. OXALIPLATIN. [Suspect]
     Active Substance: OXALIPLATIN
     Indication: COLON NEOPLASM
     Dosage: 188 MG TOTAL
     Route: 042
     Dates: start: 20150421

REACTIONS (5)
  - Bronchospasm [Recovered/Resolved]
  - Muscular weakness [Unknown]
  - Formication [Recovered/Resolved]
  - Hypertension [Recovered/Resolved]
  - Eyelid ptosis [Recovered/Resolved]

NARRATIVE: CASE EVENT DATE: 20150421
